FAERS Safety Report 20751530 (Version 1)
Quarter: 2022Q2

REPORT INFORMATION
  Report Type: Spontaneous
  Country: US (occurrence: None)
  Receive Date: 20220426
  Receipt Date: 20220426
  Transmission Date: 20220721
  Serious: Yes (Hospitalization)
  Sender: FDA-Public Use
  Company Number: None

PATIENT
  Sex: Male

DRUGS (1)
  1. VIGABATRIN [Suspect]
     Active Substance: VIGABATRIN
     Indication: Status epilepticus
     Dosage: MIX 2 PACKETS IN 20ML WATER AND GIVE 15 ML BY MOUTH DAILY IN THE MORNING AND 20 ML AT ?BEDTIME. ACTH
     Route: 048
     Dates: start: 20220323

REACTIONS (1)
  - Hospitalisation [None]
